FAERS Safety Report 7431749-4 (Version None)
Quarter: 2011Q1

REPORT INFORMATION
  Report Type: 
  Country: None (occurrence: None)
  Receive Date: 20110302
  Receipt Date: 20101118
  Transmission Date: 20110831
  Serious: No
  Sender: FDA-Public Use
  Company Number: 022337

PATIENT
  Sex: Male
  Weight: 64 kg

DRUGS (8)
  1. MIRALAX [Concomitant]
  2. VICOPROFEN [Concomitant]
  3. VITAMIN B-12 [Concomitant]
  4. IMURAN [Concomitant]
  5. ALBUTEROL SULFATE [Concomitant]
  6. CLOZARIL [Concomitant]
  7. LORTAB [Concomitant]
  8. CIMZIA [Suspect]
     Indication: CROHN'S DISEASE
     Dosage: 200 MG 1X/2 WEEKS SUBCUTANEOUS
     Route: 058
     Dates: start: 20080702, end: 20101104

REACTIONS (1)
  - TOOTH ABSCESS [None]
